FAERS Safety Report 6259984-1 (Version None)
Quarter: 2009Q3

REPORT INFORMATION
  Report Type: 
  Country: None (occurrence: None)
  Receive Date: 20090708
  Receipt Date: 20090626
  Transmission Date: 20100115
  Serious: Yes (Death)
  Sender: FDA-Public Use
  Company Number: FR-PFIZER INC-2009199664

PATIENT
  Age: 62 Year

DRUGS (14)
  1. SUTENT [Suspect]
     Indication: THYROID CANCER
     Dosage: 37.5 MG , 1X/DAY
  2. LEVOTHYROX [Concomitant]
     Dosage: 175 UNK, 1X/DAY
  3. UN-ALFA [Concomitant]
     Dosage: 2 UG, 2X/DAY
  4. CALCIUM FOLINATE [Concomitant]
     Dosage: 3 X DAY
  5. COTAREG [Concomitant]
     Dosage: 165/25MG, 1 X DAY
  6. DOMPERIDONE [Concomitant]
  7. ULTRA-LEVURE [Concomitant]
  8. TIORFAN [Concomitant]
  9. CIFLOX [Concomitant]
  10. TARDYFERON [Concomitant]
  11. SERUM PHYSIOLOGICAL [Concomitant]
  12. POTASSIUM CHLORIDE [Concomitant]
  13. HYDROSOL POLYVITAMINE ^ROCHE^ [Concomitant]
  14. ALBUMIN HUMAN [Concomitant]

REACTIONS (1)
  - SEPSIS [None]
